FAERS Safety Report 18218140 (Version 1)
Quarter: 2020Q3

REPORT INFORMATION
  Report Type: Spontaneous
  Country: FR (occurrence: FR)
  Receive Date: 20200901
  Receipt Date: 20200901
  Transmission Date: 20201103
  Serious: Yes (Other)
  Sender: FDA-Public Use
  Company Number: FR-MYLANLABS-2020M1074812

PATIENT
  Age: 55 Year
  Sex: Male
  Weight: 88 kg

DRUGS (2)
  1. CANDESARTAN SANDOZ [Interacting]
     Active Substance: CANDESARTAN
     Indication: CARDIAC FAILURE
     Dosage: 16 MILLIGRAM, QD, DIMINU?E ? 8 MG/JOUR
     Route: 048
     Dates: end: 20200416
  2. EPLERENONE. [Suspect]
     Active Substance: EPLERENONE
     Indication: CARDIAC FAILURE
     Dosage: 25 MILLIGRAM, QD
     Route: 048
     Dates: end: 20200416

REACTIONS (2)
  - Drug interaction [Unknown]
  - Hyperkalaemia [Recovering/Resolving]

NARRATIVE: CASE EVENT DATE: 20200415
